FAERS Safety Report 16658042 (Version 1)
Quarter: 2019Q3

REPORT INFORMATION
  Report Type: Spontaneous
  Country: US (occurrence: US)
  Receive Date: 20190801
  Receipt Date: 20190801
  Transmission Date: 20191004
  Serious: No
  Sender: FDA-Public Use
  Company Number: US-TEVA-2019-US-1084479

PATIENT
  Sex: Male

DRUGS (1)
  1. TESTOSTERONE. [Suspect]
     Active Substance: TESTOSTERONE
     Route: 065

REACTIONS (5)
  - Nail growth abnormal [Unknown]
  - Product quality issue [Unknown]
  - Hair growth abnormal [Unknown]
  - Asthenia [Unknown]
  - Drug ineffective [Unknown]
